FAERS Safety Report 7488778-4 (Version None)
Quarter: 2011Q2

REPORT INFORMATION
  Report Type: 
  Country: None (occurrence: None)
  Receive Date: 20110518
  Receipt Date: 20110512
  Transmission Date: 20111010
  Serious: Yes (Other)
  Sender: FDA-Public Use
  Company Number: JP-PFIZER INC-2011042442

PATIENT
  Age: 79 Year
  Sex: Female

DRUGS (2)
  1. DEPAS [Concomitant]
     Dosage: 0.5 MG, DAILY
     Route: 048
     Dates: start: 20060201
  2. LYRICA [Suspect]
     Indication: PAIN IN EXTREMITY
     Dosage: 75 MG, 1X/DAY (BEFORE GOING TO BED)
     Route: 048
     Dates: start: 20110217, end: 20110217

REACTIONS (1)
  - MUSCULOSKELETAL STIFFNESS [None]
